FAERS Safety Report 5663883-3 (Version None)
Quarter: 2008Q1

REPORT INFORMATION
  Report Type: 
  Country: None (occurrence: None)
  Receive Date: 20080311
  Receipt Date: 20080228
  Transmission Date: 20080703
  Serious: Yes (Hospitalization)
  Sender: FDA-Public Use
  Company Number: GXKR2008CH02125

PATIENT
  Age: 84 Year
  Sex: Female

DRUGS (3)
  1. CYCLOSPORINE [Suspect]
     Indication: RENAL TRANSPLANT
  2. ESCITALOPRAM OXALATE [Suspect]
     Indication: DEPRESSION
  3. AZATHIOPRINE [Concomitant]

REACTIONS (4)
  - DRUG INTERACTION [None]
  - EXTRAPYRAMIDAL DISORDER [None]
  - MYDRIASIS [None]
  - SEROTONIN SYNDROME [None]
